FAERS Safety Report 13342668 (Version 1)
Quarter: 2017Q1

REPORT INFORMATION
  Report Type: Report from Study
  Country: US (occurrence: US)
  Receive Date: 20170316
  Receipt Date: 20170316
  Transmission Date: 20170428
  Serious: Yes (Other)
  Sender: FDA-Public Use
  Company Number: US-UCBSA-2017009871

PATIENT
  Age: 32 Year
  Sex: Male

DRUGS (2)
  1. ZANAFLEX [Suspect]
     Active Substance: TIZANIDINE HYDROCHLORIDE
     Indication: PRODUCT USED FOR UNKNOWN INDICATION
     Dosage: UNK
  2. LEVETIRACETAM. [Suspect]
     Active Substance: LEVETIRACETAM
     Indication: PARTIAL SEIZURES
     Dosage: UNK

REACTIONS (4)
  - Brain operation [Unknown]
  - Seizure [Not Recovered/Not Resolved]
  - Drug ineffective [Unknown]
  - Nasal injury [Unknown]

NARRATIVE: CASE EVENT DATE: 20170309
